FAERS Safety Report 9156187 (Version 1)
Quarter: 2013Q1

REPORT INFORMATION
  Report Type: Spontaneous
  Country: US (occurrence: US)
  Receive Date: 20130123
  Receipt Date: 20130123
  Transmission Date: 20140127
  Serious: No
  Sender: FDA-Public Use
  Company Number: US-BRACCO-007727

PATIENT
  Age: 67 Year
  Sex: Male

DRUGS (2)
  1. MULTIHANCE [Suspect]
     Indication: ANGIOGRAM
     Route: 042
     Dates: start: 20120314, end: 20120314
  2. MULTIHANCE [Suspect]
     Indication: TRANSIENT ISCHAEMIC ATTACK
     Route: 042
     Dates: start: 20120314, end: 20120314

REACTIONS (1)
  - Throat irritation [Recovered/Resolved]
